FAERS Safety Report 20795647 (Version 1)
Quarter: 2022Q2

REPORT INFORMATION
  Report Type: Spontaneous
  Country: CN (occurrence: CN)
  Receive Date: 20220506
  Receipt Date: 20220506
  Transmission Date: 20220721
  Serious: Yes (Other)
  Sender: FDA-Public Use
  Company Number: CN-009507513-2205CHN000168

PATIENT
  Age: 78 Year
  Sex: Female
  Weight: 73 kg

DRUGS (1)
  1. INVANZ [Suspect]
     Active Substance: ERTAPENEM SODIUM
     Indication: Anti-infective therapy
     Dosage: 1 G, ONCE DAILY
     Route: 041
     Dates: start: 20220414, end: 20220415

REACTIONS (3)
  - Gastrointestinal carcinoma [Unknown]
  - Rash pruritic [Recovering/Resolving]
  - Nausea [Recovering/Resolving]

NARRATIVE: CASE EVENT DATE: 20220414
